FAERS Safety Report 7644272-9 (Version None)
Quarter: 2011Q3

REPORT INFORMATION
  Report Type: 
  Country: None (occurrence: None)
  Receive Date: 20110729
  Receipt Date: 20110722
  Transmission Date: 20111222
  Serious: Yes (Other)
  Sender: FDA-Public Use
  Company Number: PHEH2010US03472

PATIENT
  Sex: Female

DRUGS (9)
  1. DEPO-PROVERA [Concomitant]
  2. OMEPRAZOLE [Concomitant]
  3. ZELNORM [Suspect]
     Indication: GASTRIC DISORDER
  4. ADVAIR DISKUS 100/50 [Concomitant]
  5. SPIRIVA [Concomitant]
  6. PROAIR HFA [Concomitant]
  7. MOBIC [Concomitant]
  8. SINGULAIR [Concomitant]
  9. PROCTOFOAM [Concomitant]

REACTIONS (13)
  - ARRHYTHMIA [None]
  - FLATULENCE [None]
  - PALPITATIONS [None]
  - HAEMORRHOIDS [None]
  - INJURY [None]
  - BACK PAIN [None]
  - CHEST PAIN [None]
  - FUNCTIONAL GASTROINTESTINAL DISORDER [None]
  - CARDIAC DISORDER [None]
  - DEFAECATION URGENCY [None]
  - GASTROINTESTINAL MOTILITY DISORDER [None]
  - DYSPNOEA [None]
  - ARTHRALGIA [None]
